FAERS Safety Report 4320560-9 (Version None)
Quarter: 2004Q1

REPORT INFORMATION
  Report Type: 
  Country: None (occurrence: None)
  Receive Date: 20040317
  Receipt Date: 20040308
  Transmission Date: 20041129
  Serious: Yes (Other)
  Sender: FDA-Public Use
  Company Number: 2004016471

PATIENT
  Sex: Female

DRUGS (1)
  1. RELPAX [Suspect]
     Indication: HEADACHE

REACTIONS (1)
  - DRUG DEPENDENCE [None]
